FAERS Safety Report 7816486-6 (Version None)
Quarter: 2011Q4

REPORT INFORMATION
  Report Type: 
  Country: None (occurrence: None)
  Receive Date: 20111017
  Receipt Date: 20111005
  Transmission Date: 20120403
  Serious: Yes (Hospitalization)
  Sender: FDA-Public Use
  Company Number: CA-JNJFOC-20111006088

PATIENT
  Sex: Female

DRUGS (11)
  1. ZOPLICONE [Concomitant]
  2. LANSOPRAZOLE [Concomitant]
  3. KETOROLAC TROMETHAMINE [Concomitant]
  4. PLAQUENIL [Concomitant]
  5. FOLIC ACID [Concomitant]
  6. SULFASALAZINE [Concomitant]
  7. METHOTREXATE [Concomitant]
  8. CYCLOBENZAPRINE [Concomitant]
  9. SYMBICORT [Concomitant]
  10. REMICADE [Suspect]
     Indication: RHEUMATOID ARTHRITIS
     Route: 042
     Dates: start: 20091112
  11. VENTOLIN [Concomitant]

REACTIONS (1)
  - BLADDER OPERATION [None]
